FAERS Safety Report 7694030-4 (Version None)
Quarter: 2011Q3

REPORT INFORMATION
  Report Type: 
  Country: None (occurrence: None)
  Receive Date: 20110819
  Receipt Date: 20110810
  Transmission Date: 20111222
  Serious: Yes (Hospitalization, Other)
  Sender: FDA-Public Use
  Company Number: US-ELI_LILLY_AND_COMPANY-US201002003753

PATIENT
  Sex: Male
  Weight: 111.11 kg

DRUGS (13)
  1. TRICOR [Concomitant]
     Dosage: 145 MG, QD
  2. RELAFEN [Concomitant]
     Dosage: 750 MG, BID
     Route: 048
  3. NEXIUM [Concomitant]
     Dosage: 40 MG, QD
  4. FISH OIL [Concomitant]
     Dosage: 1000 MG, BID
  5. BYETTA [Suspect]
     Dosage: 10 UG, BID
     Route: 065
     Dates: start: 20060401, end: 20070809
  6. LIPITOR [Concomitant]
     Dosage: 20 MG, EACH EVENING
     Route: 048
  7. ACTOS [Concomitant]
     Dosage: 30 MG, QD
  8. PRILOSEC [Concomitant]
     Indication: DYSPEPSIA
  9. ORAL ANTIDIABETICS [Concomitant]
  10. LISINOPRIL [Concomitant]
     Dosage: 20 MG, QD
  11. MULTI-VITAMIN [Concomitant]
  12. ACTOS [Concomitant]
     Dosage: 45 MG, QD
  13. METFORMIN HCL [Concomitant]
     Dosage: 1000 MG, BID
     Route: 048

REACTIONS (4)
  - TYPE 1 DIABETES MELLITUS [None]
  - DIABETIC GASTROPARESIS [None]
  - AUTONOMIC NEUROPATHY [None]
  - PANCREATITIS ACUTE [None]
